FAERS Safety Report 7218812-8 (Version None)
Quarter: 2011Q1

REPORT INFORMATION
  Report Type: 
  Country: None (occurrence: None)
  Receive Date: 20110110
  Receipt Date: 20100707
  Transmission Date: 20110831
  Serious: No
  Sender: FDA-Public Use
  Company Number: US-ABBOTT-10P-163-0656508-00

PATIENT

DRUGS (1)
  1. VICODIN [Suspect]
     Indication: RHEUMATOID ARTHRITIS
     Dates: start: 19950101, end: 19950101

REACTIONS (1)
  - PRURITUS [None]
